FAERS Safety Report 12189303 (Version 2)
Quarter: 2016Q2

REPORT INFORMATION
  Report Type: Spontaneous
  Country: US (occurrence: US)
  Receive Date: 20160317
  Receipt Date: 20160525
  Transmission Date: 20160815
  Serious: Yes (Other)
  Sender: FDA-Public Use
  Company Number: US-TEVA-643144USA

PATIENT
  Age: 26 Year
  Sex: Female

DRUGS (1)
  1. COPAXONE [Suspect]
     Active Substance: GLATIRAMER ACETATE
     Indication: PRODUCT USED FOR UNKNOWN INDICATION
     Dosage: UNKNOWN FORM STRENGTH
     Route: 065

REACTIONS (14)
  - Mental disorder [Unknown]
  - Paraesthesia [Unknown]
  - Treatment noncompliance [Unknown]
  - Hypoaesthesia [Unknown]
  - Fatigue [Unknown]
  - Flank pain [Unknown]
  - Suicidal ideation [Unknown]
  - Multiple sclerosis [Unknown]
  - Drug ineffective [Unknown]
  - Altered state of consciousness [Unknown]
  - Multiple sclerosis relapse [Unknown]
  - Intentional self-injury [Unknown]
  - Bipolar disorder [Unknown]
  - Dysarthria [Unknown]
